FAERS Safety Report 22137210 (Version 3)
Quarter: 2023Q2

REPORT INFORMATION
  Report Type: Spontaneous
  Country: US (occurrence: US)
  Receive Date: 20230324
  Receipt Date: 20230628
  Transmission Date: 20230722
  Serious: No
  Sender: FDA-Public Use
  Company Number: US-002147023-NVSC2023US062587

PATIENT
  Sex: Male

DRUGS (4)
  1. COSENTYX [Suspect]
     Active Substance: SECUKINUMAB
     Indication: Product used for unknown indication
     Dosage: 2 DOSAGE FORM (STRENGTH: 2X 150 MG/ML)
     Route: 065
     Dates: start: 20230115
  2. COSENTYX [Suspect]
     Active Substance: SECUKINUMAB
     Dosage: 1 DOSAGE FORM (STRENGTH: 300 MG/ML)
     Route: 065
     Dates: start: 20230215
  3. COSENTYX [Suspect]
     Active Substance: SECUKINUMAB
     Dosage: 150 MILLIGRAM PER MILLILITRE PER DOSE
     Route: 065
     Dates: start: 20230115
  4. COSENTYX [Suspect]
     Active Substance: SECUKINUMAB
     Dosage: 300 MILLIGRAM PER MILLILITRE PER DOSE
     Route: 065
     Dates: start: 20230215

REACTIONS (9)
  - Nail bed bleeding [Unknown]
  - Skin disorder [Unknown]
  - Nail disorder [Unknown]
  - Onychoclasis [Unknown]
  - Psoriasis [Unknown]
  - Arthralgia [Unknown]
  - Injection site haemorrhage [Unknown]
  - Product dose omission in error [Unknown]
  - Drug ineffective [Unknown]
